FAERS Safety Report 7383603-4 (Version None)
Quarter: 2011Q1

REPORT INFORMATION
  Report Type: 
  Country: None (occurrence: None)
  Receive Date: 20110328
  Receipt Date: 20110328
  Transmission Date: 20110831
  Serious: Yes (Other)
  Sender: FDA-Public Use
  Company Number: None

PATIENT
  Sex: Male
  Weight: 92.9 kg

DRUGS (2)
  1. ARGATROBAN [Suspect]
     Indication: THROMBOSIS PROPHYLAXIS
     Dosage: 0.5MCG/ KG/MIN CONTINUOUS INFUSIO IV DRIP
     Route: 041
     Dates: start: 20110223, end: 20110223
  2. ARGATROBAN [Suspect]
     Indication: HEPARIN-INDUCED THROMBOCYTOPENIA
     Dosage: 0.5MCG/ KG/MIN CONTINUOUS INFUSIO IV DRIP
     Route: 041
     Dates: start: 20110223, end: 20110223

REACTIONS (1)
  - URTICARIA [None]
